FAERS Safety Report 21476870 (Version 1)
Quarter: 2022Q4

REPORT INFORMATION
  Report Type: Spontaneous
  Country: US (occurrence: US)
  Receive Date: 20221019
  Receipt Date: 20221019
  Transmission Date: 20230113
  Serious: Yes (Hospitalization, Other)
  Sender: FDA-Public Use
  Company Number: US-SA-SAC20221012001232

PATIENT
  Age: 34 Year
  Sex: Female

DRUGS (1)
  1. LANTUS [Suspect]
     Active Substance: INSULIN GLARGINE
     Dosage: UNK
     Route: 065

REACTIONS (10)
  - Impaired gastric emptying [Unknown]
  - Endometrial cancer [Unknown]
  - Endometrial cancer metastatic [Unknown]
  - Abdominal pain [Unknown]
  - Mass [Unknown]
  - Abscess [Unknown]
  - Hepatic steatosis [Unknown]
  - Hypoglycaemia [Unknown]
  - Weight abnormal [Unknown]
  - Insulin resistance [Unknown]

NARRATIVE: CASE EVENT DATE: 20201201
